FAERS Safety Report 11218444 (Version 2)
Quarter: 2015Q3

REPORT INFORMATION
  Report Type: Spontaneous
  Country: JP (occurrence: None)
  Receive Date: 20150623
  Receipt Date: 20150702
  Transmission Date: 20151125
  Serious: Yes (Other)
  Sender: FDA-Public Use
  Company Number: UCM201506-000417

PATIENT
  Age: 31 Month
  Sex: Female

DRUGS (6)
  1. TOPIRAMATE (TOPIRAMATE) (TOPIRAMATE) [Concomitant]
     Active Substance: TOPIRAMATE
  2. CLOBAZAM (CLOBAZAM) (CLOBAZAM) [Concomitant]
     Active Substance: CLOBAZAM
  3. DANTROLENE (DANTROLENE) (DANTROLENE) [Concomitant]
  4. IMIGLUCERASE (IMIGLUCERASE) (IMIGLUCERASE) [Concomitant]
  5. TIZANIDINE HYDROCHLORIDE (TIZANIDINE HYDROCHLORIDE) (TIZANIDINE HYDROCHLORIDE) [Concomitant]
  6. DIVALPROEX SODIUM. [Suspect]
     Active Substance: DIVALPROEX SODIUM

REACTIONS (4)
  - Osteoporosis [None]
  - Fanconi syndrome [None]
  - Osteomyelitis [None]
  - Pathological fracture [None]
